FAERS Safety Report 13347527 (Version 1)
Quarter: 2017Q1

REPORT INFORMATION
  Report Type: Spontaneous
  Country: ES (occurrence: ES)
  Receive Date: 20170317
  Receipt Date: 20170317
  Transmission Date: 20170428
  Serious: Yes (Other)
  Sender: FDA-Public Use
  Company Number: ES-BRISTOL-MYERS SQUIBB COMPANY-BMS-2017-021278

PATIENT
  Age: 45 Year
  Sex: Female

DRUGS (1)
  1. TRIGON DEPOT [Suspect]
     Active Substance: TRIAMCINOLONE ACETONIDE
     Indication: EPICONDYLITIS
     Dosage: UNK
     Route: 065
     Dates: start: 20160309

REACTIONS (8)
  - Injection site reaction [Unknown]
  - Drug intolerance [Unknown]
  - Injection site atrophy [Unknown]
  - Ligament sprain [Unknown]
  - Epicondylitis [Unknown]
  - Fall [Unknown]
  - Haematoma [Unknown]
  - Injection site pain [Unknown]
